FAERS Safety Report 24618520 (Version 1)
Quarter: 2024Q4

REPORT INFORMATION
  Report Type: Spontaneous
  Country: US (occurrence: None)
  Receive Date: 20241113
  Receipt Date: 20241113
  Transmission Date: 20250115
  Serious: Yes (Hospitalization, Other)
  Sender: Public
  Company Number: None

PATIENT
  Age: 81 Year
  Sex: Female

DRUGS (1)
  1. REVLIMID [Suspect]
     Active Substance: LENALIDOMIDE
     Indication: Plasma cell myeloma
     Dosage: FREQUENCY : DAILY;?
     Route: 048
     Dates: start: 20220311

REACTIONS (4)
  - Brain injury [None]
  - Cerebrovascular accident [None]
  - Unresponsive to stimuli [None]
  - Oxygen saturation decreased [None]

NARRATIVE: CASE EVENT DATE: 20241113
